FAERS Safety Report 10098702 (Version 1)
Quarter: 2014Q2

REPORT INFORMATION
  Report Type: Spontaneous
  Country: US (occurrence: None)
  Receive Date: 20140417
  Receipt Date: 20140417
  Transmission Date: 20141212
  Serious: No
  Sender: FDA-Public Use
  Company Number: US-145479

PATIENT
  Sex: Female

DRUGS (1)
  1. VARIZIG [Suspect]
     Dates: start: 201308, end: 201308

REACTIONS (2)
  - Exposure during pregnancy [None]
  - No adverse event [None]
